FAERS Safety Report 4599733-6 (Version None)
Quarter: 2005Q1

REPORT INFORMATION
  Report Type: 
  Country: None (occurrence: None)
  Receive Date: 20050303
  Receipt Date: 20050216
  Transmission Date: 20050727
  Serious: Yes (Hospitalization)
  Sender: FDA-Public Use
  Company Number: USA041286795

PATIENT
  Age: 35 Year
  Sex: Female
  Weight: 52 kg

DRUGS (8)
  1. CYMBALTA [Suspect]
     Indication: DEPRESSION
     Dosage: 30 MG
     Dates: start: 20041210, end: 20041214
  2. CYMBALTA [Suspect]
     Indication: MENTAL DISORDER
     Dosage: 30 MG
     Dates: start: 20041210, end: 20041214
  3. ZANAFLEX [Concomitant]
  4. VICODIN [Concomitant]
  5. TRAMADOL HCL [Concomitant]
  6. PEPTO-BISMOL (BISMUTH SUBSALICYLATE) [Concomitant]
  7. ALUMINUM HYDROXIDE AND MAGNESIUM TRISILICATE [Concomitant]
  8. VITAMINS [Concomitant]

REACTIONS (25)
  - ABDOMINAL PAIN UPPER [None]
  - ALCOHOL POISONING [None]
  - BLOOD PRESSURE FLUCTUATION [None]
  - BODY TEMPERATURE INCREASED [None]
  - CONTUSION [None]
  - DIARRHOEA [None]
  - DRUG INTOLERANCE [None]
  - DYSKINESIA [None]
  - DYSTONIA [None]
  - EMOTIONAL DISORDER [None]
  - FATIGUE [None]
  - FEELING ABNORMAL [None]
  - HAEMORRHAGE [None]
  - HEART RATE INCREASED [None]
  - INSOMNIA [None]
  - LOCALISED OEDEMA [None]
  - MEDICATION ERROR [None]
  - MOVEMENT DISORDER [None]
  - MUSCLE DISORDER [None]
  - MUSCLE SPASMS [None]
  - MUSCLE TWITCHING [None]
  - NEUROLOGICAL EXAMINATION ABNORMAL [None]
  - NIGHT BLINDNESS [None]
  - TREATMENT NONCOMPLIANCE [None]
  - VISUAL DISTURBANCE [None]
